FAERS Safety Report 5003456-9 (Version None)
Quarter: 2006Q2

REPORT INFORMATION
  Report Type: 
  Country: None (occurrence: None)
  Receive Date: 20060512
  Receipt Date: 20060428
  Transmission Date: 20061013
  Serious: Yes (Hospitalization)
  Sender: FDA-Public Use
  Company Number: US200603002315

PATIENT
  Sex: Female

DRUGS (2)
  1. PROZAC [Suspect]
  2. LEXAPRO [Concomitant]

REACTIONS (3)
  - CONDITION AGGRAVATED [None]
  - TREATMENT NONCOMPLIANCE [None]
  - UNEVALUABLE EVENT [None]
